FAERS Safety Report 21126842 (Version 1)
Quarter: 2022Q3

REPORT INFORMATION
  Report Type: Spontaneous
  Country: US (occurrence: None)
  Receive Date: 20220725
  Receipt Date: 20220725
  Transmission Date: 20221027
  Serious: Yes (Hospitalization)
  Sender: FDA-Public Use
  Company Number: None

PATIENT
  Age: 75 Year
  Sex: Female

DRUGS (1)
  1. PRADAXA [Suspect]
     Active Substance: DABIGATRAN ETEXILATE MESYLATE
     Dates: start: 20171012, end: 20220625

REACTIONS (3)
  - Thrombosis [None]
  - Drug ineffective [None]
  - Therapy change [None]

NARRATIVE: CASE EVENT DATE: 20220625
